FAERS Safety Report 6084060-0 (Version None)
Quarter: 2009Q1

REPORT INFORMATION
  Report Type: 
  Country: None (occurrence: None)
  Receive Date: 20090219
  Receipt Date: 20090206
  Transmission Date: 20090719
  Serious: Yes (Hospitalization, Other)
  Sender: FDA-Public Use
  Company Number: US-ELI_LILLY_AND_COMPANY-US200902001767

PATIENT
  Age: 49 Year
  Sex: Male

DRUGS (4)
  1. CYMBALTA [Suspect]
     Indication: DEPRESSION
     Dosage: 30 MG, DAILY (1/D)
     Route: 048
  2. ZOCOR [Concomitant]
  3. ASPIRIN [Concomitant]
  4. BETA BLOCKING AGENTS [Concomitant]

REACTIONS (2)
  - HOSPITALISATION [None]
  - MYOCARDIAL INFARCTION [None]
